FAERS Safety Report 22004877 (Version 1)
Quarter: 2023Q1

REPORT INFORMATION
  Report Type: Spontaneous
  Country: US (occurrence: US)
  Receive Date: 20230217
  Receipt Date: 20230217
  Transmission Date: 20230417
  Serious: No
  Sender: FDA-Public Use
  Company Number: US-SA-SAC20230216001104

PATIENT
  Age: 54 Year
  Sex: Female

DRUGS (3)
  1. CAPRELSA [Suspect]
     Active Substance: VANDETANIB
     Dosage: UNK
     Route: 048
     Dates: start: 20190729
  2. BUDESONIDE [Suspect]
     Active Substance: BUDESONIDE
     Dosage: UNK
  3. FLONASE [Suspect]
     Active Substance: FLUTICASONE PROPIONATE
     Dosage: UNK

REACTIONS (2)
  - Dysphonia [Unknown]
  - Condition aggravated [Unknown]
